FAERS Safety Report 8505686-8 (Version None)
Quarter: 2012Q3

REPORT INFORMATION
  Report Type: 
  Country: None (occurrence: None)
  Receive Date: 20120712
  Receipt Date: 20120704
  Transmission Date: 20120928
  Serious: Yes (Death)
  Sender: FDA-Public Use
  Company Number: IE-NOVOPROD-353847

PATIENT
  Sex: Male

DRUGS (4)
  1. DIAZEPAM [Concomitant]
  2. NOVORAPID FLEXPEN [Suspect]
     Dosage: UNK
     Route: 065
  3. INSULIN [Concomitant]
  4. NOVORAPID FLEXPEN [Suspect]
     Indication: PRODUCT USED FOR UNKNOWN INDICATION
     Dosage: UNK
     Route: 065

REACTIONS (2)
  - COMPLETED SUICIDE [None]
  - INTENTIONAL DRUG MISUSE [None]
